FAERS Safety Report 24312048 (Version 4)
Quarter: 2025Q2

REPORT INFORMATION
  Report Type: Report from Study
  Country: CA (occurrence: CA)
  Receive Date: 20240912
  Receipt Date: 20250411
  Transmission Date: 20250716
  Serious: Yes (Hospitalization, Other)
  Sender: TAKEDA
  Company Number: CA-TAKEDA-2024TUS090217

PATIENT
  Age: 47 Year
  Sex: Female

DRUGS (3)
  1. VEDOLIZUMAB [Suspect]
     Active Substance: VEDOLIZUMAB
     Indication: Colitis ulcerative
  2. VEDOLIZUMAB [Suspect]
     Active Substance: VEDOLIZUMAB
  3. VEDOLIZUMAB [Suspect]
     Active Substance: VEDOLIZUMAB

REACTIONS (12)
  - Blood blister [Unknown]
  - Intestinal obstruction [Unknown]
  - Skin lesion [Unknown]
  - Malaise [Unknown]
  - Vomiting [Unknown]
  - Facial discomfort [Recovering/Resolving]
  - Escherichia infection [Unknown]
  - Blood test abnormal [Unknown]
  - Colonoscopy abnormal [Unknown]
  - Asthenia [Unknown]
  - Night sweats [Unknown]
  - Rash [Unknown]

NARRATIVE: CASE EVENT DATE: 20250403
